FAERS Safety Report 5016537-0 (Version None)
Quarter: 2006Q2

REPORT INFORMATION
  Report Type: 
  Country: None (occurrence: None)
  Receive Date: 20060602
  Receipt Date: 20060519
  Transmission Date: 20061013
  Serious: Yes (Hospitalization)
  Sender: FDA-Public Use
  Company Number: PHRM2006FR01633

PATIENT
  Age: 82 Year
  Sex: Male

DRUGS (1)
  1. GLEEVEC [Suspect]
     Indication: GASTROINTESTINAL STROMAL TUMOUR
     Dosage: 400 MG/DAY
     Route: 048

REACTIONS (5)
  - FALL [None]
  - GENERAL ANAESTHESIA [None]
  - JOINT DISLOCATION [None]
  - JOINT DISLOCATION REDUCTION [None]
  - RIB FRACTURE [None]
